FAERS Safety Report 23812028 (Version 4)
Quarter: 2024Q3

REPORT INFORMATION
  Report Type: Report from Study
  Country: RU (occurrence: RU)
  Receive Date: 20240503
  Receipt Date: 20240820
  Transmission Date: 20241016
  Serious: Yes (Other)
  Sender: ROCHE
  Company Number: RU-ROCHE-3555175

PATIENT
  Age: 47 Year
  Sex: Female

DRUGS (2)
  1. GLOFITAMAB [Suspect]
     Active Substance: GLOFITAMAB
     Indication: Product used for unknown indication
     Dosage: DATE OF REINITIATION OF GLOFITAMAB AFTER RESOLUTION OF AE: 25/APR/2024?25/APR/2024 RECEIVED 10 MG, 0
     Route: 065
     Dates: start: 20240418
  2. OBINUTUZUMAB [Suspect]
     Active Substance: OBINUTUZUMAB
     Indication: Product used for unknown indication
     Route: 065
     Dates: start: 20240411

REACTIONS (4)
  - Cytokine release syndrome [Recovered/Resolved]
  - Inflammation [Recovered/Resolved]
  - Erythema [Recovered/Resolved]
  - General physical health deterioration [Unknown]

NARRATIVE: CASE EVENT DATE: 20240418
